FAERS Safety Report 20160689 (Version 1)
Quarter: 2021Q4

REPORT INFORMATION
  Report Type: Spontaneous
  Country: US (occurrence: US)
  Receive Date: 20211208
  Receipt Date: 20211208
  Transmission Date: 20220303
  Serious: Yes (Other)
  Sender: FDA-Public Use
  Company Number: US-PFIZER INC-202101656001

PATIENT
  Age: 86 Year
  Sex: Male

DRUGS (1)
  1. DACARBAZINE [Suspect]
     Active Substance: DACARBAZINE
     Indication: Malignant melanoma of sites other than skin
     Dosage: 1 CYCLE

REACTIONS (1)
  - Toxicity to various agents [Unknown]
